FAERS Safety Report 19750669 (Version 2)
Quarter: 2021Q3

REPORT INFORMATION
  Report Type: Spontaneous
  Country: US (occurrence: US)
  Receive Date: 20210826
  Receipt Date: 20210908
  Transmission Date: 20211014
  Serious: No
  Sender: FDA-Public Use
  Company Number: US-PFIZER INC-2021824330

PATIENT
  Age: 84 Year

DRUGS (1)
  1. ESTRING [Suspect]
     Active Substance: ESTRADIOL
     Indication: CYSTITIS
     Dosage: 2 MG, EVERY 3 MONTHS
     Dates: start: 1983

REACTIONS (3)
  - Contraindicated product administered [Unknown]
  - Off label use [Unknown]
  - Drug effective for unapproved indication [Unknown]
